FAERS Safety Report 17414665 (Version 1)
Quarter: 2020Q1

REPORT INFORMATION
  Report Type: Spontaneous
  Country: ES (occurrence: ES)
  Receive Date: 20200213
  Receipt Date: 20200213
  Transmission Date: 20200409
  Serious: Yes (Hospitalization)
  Sender: FDA-Public Use
  Company Number: ES-OTSUKA-2020_004341

PATIENT
  Age: 55 Year
  Sex: Male

DRUGS (4)
  1. ZEBINIX [Interacting]
     Active Substance: ESLICARBAZEPINE ACETATE
     Indication: EPILEPSY
     Dosage: 800 MG, QD
     Route: 048
     Dates: start: 20190819, end: 20190905
  2. CLONAZEPAM. [Interacting]
     Active Substance: CLONAZEPAM
     Indication: AGITATION
     Dosage: 0.5 MG, QD
     Route: 048
     Dates: start: 20180828
  3. BETAHISTINA [Interacting]
     Active Substance: BETAHISTINE HYDROCHLORIDE
     Indication: DIZZINESS
     Dosage: 32 MG, QD
     Route: 048
     Dates: start: 20150824, end: 20190905
  4. ARIPIPRAZOLE. [Suspect]
     Active Substance: ARIPIPRAZOLE
     Indication: DEPRESSION
     Dosage: 10 MG, QD
     Route: 048
     Dates: start: 20190208, end: 20190905

REACTIONS (4)
  - Drug interaction [Unknown]
  - Hallucination [Recovered/Resolved]
  - Somnolence [Recovered/Resolved]
  - Product use in unapproved indication [Unknown]

NARRATIVE: CASE EVENT DATE: 2019
